FAERS Safety Report 7867459-9 (Version None)
Quarter: 2011Q4

REPORT INFORMATION
  Report Type: 
  Country: None (occurrence: None)
  Receive Date: 20111028
  Receipt Date: 20111018
  Transmission Date: 20120403
  Serious: Yes (Hospitalization)
  Sender: FDA-Public Use
  Company Number: US-BAYER-2011-102974

PATIENT
  Age: 29 Year
  Sex: Female
  Weight: 86 kg

DRUGS (6)
  1. XOPENEX [Concomitant]
     Indication: ASTHMA
     Route: 045
  2. IBUPROFEN [Concomitant]
  3. DROSPIRENONE AND ETHINYL ESTRADIOL [Suspect]
     Indication: CONTRACEPTION
     Dosage: UNK
     Route: 048
     Dates: start: 20071201, end: 20090901
  4. MIRCETTE [Concomitant]
  5. YASMIN [Suspect]
     Indication: CONTRACEPTION
     Dosage: UNK
     Route: 048
     Dates: start: 20071201, end: 20090901
  6. MULTI-VITAMIN [Concomitant]
     Dosage: UNK UNK, QD

REACTIONS (1)
  - DEEP VEIN THROMBOSIS [None]
